FAERS Safety Report 9716960 (Version 1)
Quarter: 2013Q4

REPORT INFORMATION
  Report Type: Spontaneous
  Country: US (occurrence: US)
  Receive Date: 20131127
  Receipt Date: 20131127
  Transmission Date: 20140711
  Serious: No
  Sender: FDA-Public Use
  Company Number: US-GILEAD-2009-0020093

PATIENT
  Sex: Male
  Weight: 88.45 kg

DRUGS (19)
  1. FLUTICASONE [Concomitant]
     Route: 045
  2. SALINE NASAL SPRAY [Concomitant]
     Route: 045
  3. SINGULAIR [Concomitant]
     Route: 048
  4. PREDNISONE [Concomitant]
     Route: 048
  5. PRILOSEC [Concomitant]
     Route: 048
  6. SYNTHROID [Concomitant]
     Route: 048
  7. ADVAIR [Concomitant]
     Route: 055
  8. TYLENOL [Concomitant]
     Route: 048
  9. FERROUS SULFATE [Concomitant]
     Route: 048
  10. MAG-OX [Concomitant]
     Route: 048
  11. POTASSIUM CL [Concomitant]
     Route: 048
  12. LETAIRIS [Suspect]
     Indication: PULMONARY ARTERIAL HYPERTENSION
     Route: 048
     Dates: start: 20090102
  13. COUMADIN [Concomitant]
     Route: 048
  14. OXYGEN [Concomitant]
     Route: 055
  15. LASIX [Concomitant]
     Route: 048
  16. VERAPAMIL [Concomitant]
     Route: 048
  17. SPIRONOLACTONE [Concomitant]
     Route: 048
  18. COREG [Concomitant]
     Route: 048
  19. ZAROXOLYN [Concomitant]
     Route: 048

REACTIONS (4)
  - Decreased appetite [Unknown]
  - Nausea [Unknown]
  - Nasal congestion [Unknown]
  - Flushing [Unknown]
